FAERS Safety Report 20741801 (Version 1)
Quarter: 2022Q2

REPORT INFORMATION
  Report Type: Other
  Country: DE (occurrence: None)
  Receive Date: 20220423
  Receipt Date: 20220423
  Transmission Date: 20220721
  Serious: Yes (Other)
  Sender: FDA-Public Use
  Company Number: DE-ROCHE-3074042

PATIENT
  Age: 61 Year

DRUGS (8)
  1. ATEZOLIZUMAB [Suspect]
     Active Substance: ATEZOLIZUMAB
     Indication: Small cell lung cancer
     Route: 065
  2. MYCOPHENOLATE MOFETIL [Suspect]
     Active Substance: MYCOPHENOLATE MOFETIL
     Indication: Immunosuppressant drug therapy
     Route: 065
  3. METHYLPREDNISOLONE [Suspect]
     Active Substance: METHYLPREDNISOLONE
     Indication: Immunosuppressant drug therapy
     Route: 065
  4. TOPOTECAN [Concomitant]
     Active Substance: TOPOTECAN HYDROCHLORIDE
  5. METYRAPONE [Concomitant]
     Active Substance: METYRAPONE
  6. CARBOPLATIN [Concomitant]
     Active Substance: CARBOPLATIN
  7. ETOPOSIDE [Concomitant]
     Active Substance: ETOPOSIDE
  8. PREDNISONE [Concomitant]
     Active Substance: PREDNISONE

REACTIONS (7)
  - Myocarditis [Unknown]
  - Cardiac failure acute [Unknown]
  - Disease progression [Unknown]
  - Metastases to lymph nodes [Unknown]
  - Metastases to bone [Unknown]
  - Ejection fraction decreased [Unknown]
  - Bundle branch block left [Unknown]
